FAERS Safety Report 4890588-9 (Version None)
Quarter: 2006Q1

REPORT INFORMATION
  Report Type: 
  Country: None (occurrence: None)
  Receive Date: 20060123
  Receipt Date: 20060105
  Transmission Date: 20060701
  Serious: Yes (Hospitalization)
  Sender: FDA-Public Use
  Company Number: US_0509122201

PATIENT
  Age: 55 Year
  Sex: Female

DRUGS (5)
  1. ZYPREXA [Suspect]
     Indication: DEPRESSION
     Dates: start: 20040205, end: 20040205
  2. SYMBYAX [Suspect]
     Dates: start: 20040205, end: 20040229
  3. LIPITOR [Concomitant]
  4. PROZAC WEEKLY (FLUOXETINE HYDROCHLORIDE) CAPSULE [Concomitant]
  5. RISPERIDONE [Concomitant]

REACTIONS (9)
  - BLOOD POTASSIUM INCREASED [None]
  - BLOOD SODIUM DECREASED [None]
  - DEHYDRATION [None]
  - DIABETES MELLITUS NON-INSULIN-DEPENDENT [None]
  - DIABETIC HYPEROSMOLAR COMA [None]
  - DIABETIC KETOACIDOSIS [None]
  - DRUG INTOLERANCE [None]
  - ELECTROLYTE IMBALANCE [None]
  - URINE KETONE BODY PRESENT [None]
